FAERS Safety Report 22264042 (Version 4)
Quarter: 2023Q2

REPORT INFORMATION
  Report Type: Report from Study
  Country: CN (occurrence: None)
  Receive Date: 20230428
  Receipt Date: 20230630
  Transmission Date: 20230722
  Serious: Yes (Hospitalization)
  Sender: FDA-Public Use
  Company Number: CN-ROCHE-3338068

PATIENT
  Age: 64 Year
  Sex: Male
  Weight: 60 kg

DRUGS (15)
  1. VEMURAFENIB [Suspect]
     Active Substance: VEMURAFENIB
     Indication: Neoplasm
     Route: 048
     Dates: start: 20220408, end: 20220610
  2. VEMURAFENIB [Suspect]
     Active Substance: VEMURAFENIB
     Route: 048
     Dates: start: 20220628, end: 20220811
  3. VEMURAFENIB [Suspect]
     Active Substance: VEMURAFENIB
     Route: 048
     Dates: start: 20220901, end: 20221016
  4. VEMURAFENIB [Suspect]
     Active Substance: VEMURAFENIB
     Route: 048
     Dates: start: 20221017, end: 20221219
  5. VEMURAFENIB [Suspect]
     Active Substance: VEMURAFENIB
     Route: 048
     Dates: start: 20221231, end: 20230420
  6. PIPERACILLIN SODIUM [Concomitant]
     Active Substance: PIPERACILLIN SODIUM
  7. TAZOBACTAM SODIUM [Concomitant]
     Active Substance: TAZOBACTAM SODIUM
  8. PROPOFOL [Concomitant]
     Active Substance: PROPOFOL
  9. TRAMADOL [Concomitant]
     Active Substance: TRAMADOL
  10. PHLOROGLUCINOL [Concomitant]
     Active Substance: PHLOROGLUCINOL
  11. ILAPRAZOLE [Concomitant]
     Active Substance: ILAPRAZOLE
  12. ALUMINUM PHOSPHATE [Concomitant]
     Active Substance: ALUMINUM PHOSPHATE
  13. POLYETHYLENE GLYCOL ELECTROLYTES [Concomitant]
  14. TRIMEBUTINE [Concomitant]
     Active Substance: TRIMEBUTINE
  15. TRAMADOL HYDROCHLORIDE [Concomitant]
     Active Substance: TRAMADOL HYDROCHLORIDE
     Indication: Pain
     Route: 048
     Dates: start: 20230515

REACTIONS (1)
  - Abdominal pain [Not Recovered/Not Resolved]

NARRATIVE: CASE EVENT DATE: 20230317
